FAERS Safety Report 8965074 (Version 4)
Quarter: 2013Q2

REPORT INFORMATION
  Report Type: Spontaneous
  Country: US (occurrence: US)
  Receive Date: 20121213
  Receipt Date: 20130429
  Transmission Date: 20140414
  Serious: No
  Sender: FDA-Public Use
  Company Number: US-ASTRAZENECA-2012SE90833

PATIENT
  Age: 36 Year
  Sex: Female

DRUGS (2)
  1. RHINOCORT AQUA [Suspect]
     Indication: HYPERSENSITIVITY
     Route: 045
     Dates: start: 201210, end: 20130217
  2. RHINOCORT AQUA [Suspect]
     Indication: HYPERSENSITIVITY
     Route: 045

REACTIONS (4)
  - Headache [Unknown]
  - Nasal congestion [Not Recovered/Not Resolved]
  - Dyspnoea [Unknown]
  - Drug dose omission [Unknown]
